FAERS Safety Report 17313091 (Version 1)
Quarter: 2020Q1

REPORT INFORMATION
  Report Type: Spontaneous
  Country: US (occurrence: US)
  Receive Date: 20200107
  Receipt Date: 20200107
  Transmission Date: 20200409
  Serious: No
  Sender: FDA-Public Use
  Company Number: None

PATIENT
  Age: 58 Year
  Sex: Female

DRUGS (1)
  1. MYFORTIC [Suspect]
     Active Substance: MYCOPHENOLATE SODIUM
     Dosage: ?          OTHER DOSE:1;?
     Route: 048
     Dates: start: 20200107

REACTIONS (2)
  - Hypertension [None]
  - Blood glucose increased [None]

NARRATIVE: CASE EVENT DATE: 20200107
